FAERS Safety Report 13796736 (Version 1)
Quarter: 2017Q3

REPORT INFORMATION
  Report Type: Report from Study
  Country: US (occurrence: US)
  Receive Date: 20170726
  Receipt Date: 20170726
  Transmission Date: 20171127
  Serious: No
  Sender: FDA-Public Use
  Company Number: US-AMGEN-USASL2017017611

PATIENT
  Age: 70 Year
  Sex: Female

DRUGS (1)
  1. KYPROLIS [Suspect]
     Active Substance: CARFILZOMIB
     Indication: PLASMA CELL MYELOMA
     Dosage: 29.4 MG, DAY 01, 02, 08, 09, 15 AND 16 Q 28 DAYS
     Route: 065
     Dates: end: 201701

REACTIONS (1)
  - Unevaluable event [Unknown]
